FAERS Safety Report 8548673-6 (Version None)
Quarter: 2012Q3

REPORT INFORMATION
  Report Type: 
  Country: None (occurrence: None)
  Receive Date: 20120720
  Receipt Date: 20120720
  Transmission Date: 20120928
  Serious: Yes (Hospitalization, Other)
  Sender: FDA-Public Use
  Company Number: None

PATIENT
  Sex: Female

DRUGS (1)
  1. RISPERDAL [Suspect]
     Indication: BIPOLAR I DISORDER
     Dosage: ONCE EVERY 2 WEEKS IM
     Route: 030

REACTIONS (9)
  - DIZZINESS [None]
  - DYSPNOEA [None]
  - SWELLING [None]
  - SYNCOPE [None]
  - VOMITING [None]
  - ANXIETY [None]
  - WEIGHT INCREASED [None]
  - LACTATION DISORDER [None]
  - VISION BLURRED [None]
